FAERS Safety Report 7339899-8 (Version None)
Quarter: 2011Q1

REPORT INFORMATION
  Report Type: 
  Country: None (occurrence: None)
  Receive Date: 20110228
  Receipt Date: 20110216
  Transmission Date: 20110831
  Serious: Yes (Other)
  Sender: FDA-Public Use
  Company Number: 834262

PATIENT
  Age: 55 Year
  Sex: Female

DRUGS (11)
  1. DEXAMETHASONE [Concomitant]
  2. ONDANSETRON [Concomitant]
  3. PACLITAXEL [Suspect]
     Indication: OVARIAN CANCER
     Dosage: 350 MG MILLIGRAM(S),; 15 PERCENT REDUCTION,
     Dates: start: 20110114
  4. PACLITAXEL [Suspect]
     Indication: OVARIAN CANCER
     Dosage: 350 MG MILLIGRAM(S),; 15 PERCENT REDUCTION,
     Dates: start: 20101104
  5. PACLITAXEL [Suspect]
     Indication: OVARIAN CANCER
     Dosage: 350 MG MILLIGRAM(S),; 15 PERCENT REDUCTION,
     Dates: start: 20101125
  6. PACLITAXEL [Suspect]
     Indication: OVARIAN CANCER
     Dosage: 350 MG MILLIGRAM(S),; 15 PERCENT REDUCTION,
     Dates: start: 20101216
  7. CARBOPLATIN [Suspect]
     Indication: OVARIAN CANCER
     Dosage: 175 MG/M2 MILLIGRAM(S)/SQ. METER, ; 15 PERCENT REDUCTION
     Dates: start: 20110114
  8. CARBOPLATIN [Suspect]
     Indication: OVARIAN CANCER
     Dosage: 175 MG/M2 MILLIGRAM(S)/SQ. METER, ; 15 PERCENT REDUCTION
     Dates: start: 20101104
  9. CARBOPLATIN [Suspect]
     Indication: OVARIAN CANCER
     Dosage: 175 MG/M2 MILLIGRAM(S)/SQ. METER, ; 15 PERCENT REDUCTION
     Dates: start: 20101125
  10. CARBOPLATIN [Suspect]
     Indication: OVARIAN CANCER
     Dosage: 175 MG/M2 MILLIGRAM(S)/SQ. METER, ; 15 PERCENT REDUCTION
     Dates: start: 20101216
  11. ACETAMINOPHEN AND CODEINE PHOSPHATE [Concomitant]

REACTIONS (5)
  - PAIN IN EXTREMITY [None]
  - ARTERIAL THROMBOSIS [None]
  - SKIN DISCOLOURATION [None]
  - SPLINTER HAEMORRHAGES [None]
  - MUSCULOSKELETAL DISCOMFORT [None]
